FAERS Safety Report 21112889 (Version 1)
Quarter: 2022Q3

REPORT INFORMATION
  Report Type: Spontaneous
  Country: US (occurrence: None)
  Receive Date: 20220721
  Receipt Date: 20220721
  Transmission Date: 20221027
  Serious: No
  Sender: FDA-Public Use
  Company Number: None

PATIENT
  Age: 79 Year
  Sex: Male
  Weight: 81.19 kg

DRUGS (20)
  1. ABIRATERONE [Suspect]
     Active Substance: ABIRATERONE
     Indication: Prostate cancer
     Dosage: OTHER FREQUENCY : EVERY MORNING;?
     Route: 048
     Dates: start: 202204
  2. ATORVASTATIN CALCIUM [Concomitant]
     Active Substance: ATORVASTATIN CALCIUM
  3. AZELASTINE HYDROCHLORIDE\FLUTICASONE PROPIONATE [Concomitant]
     Active Substance: AZELASTINE HYDROCHLORIDE\FLUTICASONE PROPIONATE
  4. BENZONATATE [Concomitant]
     Active Substance: BENZONATATE
  5. CEPHALEXIN [Concomitant]
     Active Substance: CEPHALEXIN
  6. BUSPIRONE [Concomitant]
     Active Substance: BUSPIRONE HYDROCHLORIDE
  7. CIPROFLOXACIN [Concomitant]
     Active Substance: CIPROFLOXACIN
  8. Omeprazole ditiazem [Concomitant]
  9. FLUTICASONE [Concomitant]
     Active Substance: FLUTICASONE
  10. Hydrocodone-Acetaminophen [Concomitant]
  11. IRON [Concomitant]
     Active Substance: IRON
  12. LISINOPRIL [Concomitant]
     Active Substance: LISINOPRIL
  13. LOSARTAN POTASSIUM [Concomitant]
     Active Substance: LOSARTAN POTASSIUM
  14. NAPROXEN [Concomitant]
     Active Substance: NAPROXEN
  15. Nitrofurantion [Concomitant]
  16. OXYBUTYNIN [Concomitant]
  17. PHENAZOPHYRIDINE [Concomitant]
  18. PREDNISONE [Concomitant]
     Active Substance: PREDNISONE
  19. SERTRALINE [Concomitant]
  20. VITAMINS [Concomitant]
     Active Substance: VITAMINS

REACTIONS (3)
  - Skin haemorrhage [None]
  - Stress fracture [None]
  - Bone disorder [None]
